FAERS Safety Report 23139829 (Version 1)
Quarter: 2023Q4

REPORT INFORMATION
  Report Type: Spontaneous
  Country: US (occurrence: US)
  Receive Date: 20231102
  Receipt Date: 20231102
  Transmission Date: 20240109
  Serious: No
  Sender: FDA-Public Use
  Company Number: US-ELI_LILLY_AND_COMPANY-US202311001113

PATIENT
  Age: 39 Year
  Sex: Female

DRUGS (1)
  1. EMGALITY [Suspect]
     Active Substance: GALCANEZUMAB-GNLM
     Indication: Migraine
     Dosage: 120 MG, UNKNOWN (LOADING DOSE)
     Route: 065

REACTIONS (6)
  - Arthralgia [Unknown]
  - Flushing [Unknown]
  - Feeling hot [Unknown]
  - Palpitations [Unknown]
  - Night sweats [Unknown]
  - Burning sensation [Unknown]
